FAERS Safety Report 5261085-6 (Version None)
Quarter: 2007Q1

REPORT INFORMATION
  Report Type: 
  Country: None (occurrence: None)
  Receive Date: 20070309
  Receipt Date: 20070228
  Transmission Date: 20070707
  Serious: No
  Sender: FDA-Public Use
  Company Number: 2006UW08086

PATIENT
  Age: 20 Year
  Sex: Female
  Weight: 106.8 kg

DRUGS (5)
  1. SEROQUEL [Suspect]
     Indication: SLEEP DISORDER
     Route: 048
     Dates: end: 20040204
  2. GEODON [Concomitant]
  3. RISPERDAL [Concomitant]
  4. THORAZINE [Concomitant]
  5. TEGRETOL [Concomitant]
     Dates: start: 20060101

REACTIONS (1)
  - DIABETES MELLITUS [None]
